FAERS Safety Report 15291084 (Version 1)
Quarter: 2018Q3

REPORT INFORMATION
  Report Type: Spontaneous
  Country: US (occurrence: US)
  Receive Date: 20180817
  Receipt Date: 20180817
  Transmission Date: 20181010
  Serious: Yes (Other)
  Sender: FDA-Public Use
  Company Number: US-ASTRAZENECA-2018SF02898

PATIENT
  Age: 808 Month
  Sex: Female
  Weight: 49.9 kg

DRUGS (6)
  1. FASLODEX [Suspect]
     Active Substance: FULVESTRANT
     Indication: BREAST CANCER STAGE IV
     Dosage: UNKNOWN, EVERY TWO WEEKS.
     Route: 030
     Dates: start: 201807
  2. AFINITOR [Concomitant]
     Active Substance: EVEROLIMUS
     Indication: BREAST CANCER
     Route: 048
     Dates: start: 20180713
  3. MULTIVITAMIN [Concomitant]
     Active Substance: VITAMINS
     Dosage: UNKNOWN, DAILY.
     Route: 048
  4. CALCIUM CITRATE WITH VITAMIN D [Concomitant]
     Active Substance: CALCIUM CITRATE\VITAMIN D
  5. XGEVA [Concomitant]
     Active Substance: DENOSUMAB
     Dosage: ONCE MONTHLY AS AN IM SHOT BOTH FOR BONE STRENGTH
  6. GLUCOSAMINE CHONDROITIN MSM [Concomitant]

REACTIONS (5)
  - Seasonal allergy [Unknown]
  - Bone cancer [Unknown]
  - Injection site pain [Recovered/Resolved]
  - Pain [Unknown]
  - Stomatitis [Unknown]

NARRATIVE: CASE EVENT DATE: 201807
